FAERS Safety Report 4833857-0 (Version None)
Quarter: 2005Q4

REPORT INFORMATION
  Report Type: 
  Country: None (occurrence: None)
  Receive Date: 20051118
  Receipt Date: 20051107
  Transmission Date: 20060501
  Serious: Yes (Death)
  Sender: FDA-Public Use
  Company Number: 2005-DE-04631GD

PATIENT
  Age: 49 Year

DRUGS (3)
  1. PARACETAMOL/CODEINE (PANADEINE CO) [Suspect]
     Dosage: PO
     Route: 048
  2. BUPROPION HCL [Suspect]
     Dosage: PO
     Route: 048
  3. CARBON MONOXIDE (CARBON MONOXIDE) [Suspect]
     Dosage: IH
     Route: 055

REACTIONS (5)
  - CARBON MONOXIDE POISONING [None]
  - CARDIAC ARREST [None]
  - COMPLETED SUICIDE [None]
  - MULTIPLE DRUG OVERDOSE INTENTIONAL [None]
  - RESPIRATORY ARREST [None]
